FAERS Safety Report 20680092 (Version 1)
Quarter: 2022Q2

REPORT INFORMATION
  Report Type: Spontaneous
  Country: US (occurrence: None)
  Receive Date: 20220405
  Receipt Date: 20220405
  Transmission Date: 20220721
  Serious: No
  Sender: FDA-Public Use
  Company Number: None

PATIENT
  Age: 39 Year
  Sex: Female
  Weight: 92.25 kg

DRUGS (11)
  1. METHYLPHENIDATE [Suspect]
     Active Substance: METHYLPHENIDATE
     Indication: Attention deficit hyperactivity disorder
     Dosage: OTHER QUANTITY : 30 TABLET(S)?
     Route: 048
     Dates: start: 20220214, end: 20220405
  2. VITAMIN B [Concomitant]
     Active Substance: VITAMIN B
  3. PROBIOTICS NOS [Concomitant]
     Active Substance: PROBIOTICS NOS
  4. CONCERTA [Concomitant]
     Active Substance: METHYLPHENIDATE HYDROCHLORIDE
  5. BUPROPION HYDROCHLORIDE [Concomitant]
     Active Substance: BUPROPION HYDROCHLORIDE
  6. HYDROXYCHLOROQUINE [Concomitant]
     Active Substance: HYDROXYCHLOROQUINE
  7. ORENCIA [Concomitant]
     Active Substance: ABATACEPT
  8. ISOTRETINOIN [Concomitant]
     Active Substance: ISOTRETINOIN
  9. ELIDEL [Concomitant]
     Active Substance: PIMECROLIMUS
  10. LIDEX [Concomitant]
     Active Substance: FLUOCINONIDE
  11. TRIAMCINOLONE [Concomitant]
     Active Substance: TRIAMCINOLONE

REACTIONS (5)
  - Manufacturing issue [None]
  - Impaired work ability [None]
  - Drug ineffective [None]
  - Product quality issue [None]
  - Insomnia [None]
